FAERS Safety Report 14223943 (Version 1)
Quarter: 2017Q4

REPORT INFORMATION
  Report Type: Spontaneous
  Country: US (occurrence: None)
  Receive Date: 20171122
  Receipt Date: 20171122
  Transmission Date: 20180321
  Serious: Yes (Hospitalization)
  Sender: FDA-Public Use
  Company Number: None

PATIENT
  Age: 64 Year
  Sex: Male
  Weight: 121.4 kg

DRUGS (2)
  1. LEUPROLIDE ACETATE. [Suspect]
     Active Substance: LEUPROLIDE ACETATE
     Dates: end: 20170801
  2. CASODEX [Suspect]
     Active Substance: BICALUTAMIDE
     Dates: end: 20160607

REACTIONS (11)
  - Atrial fibrillation [None]
  - Electrocardiogram QRS complex prolonged [None]
  - Dyspnoea [None]
  - Bradycardia [None]
  - Atrial flutter [None]
  - Atrial tachycardia [None]
  - Diarrhoea [None]
  - Oedema peripheral [None]
  - Fatigue [None]
  - Asthenia [None]
  - Bundle branch block right [None]

NARRATIVE: CASE EVENT DATE: 20170914
